FAERS Safety Report 18851925 (Version 1)
Quarter: 2021Q1

REPORT INFORMATION
  Report Type: Spontaneous
  Country: US (occurrence: US)
  Receive Date: 20210205
  Receipt Date: 20210205
  Transmission Date: 20210420
  Serious: Yes (Other)
  Sender: FDA-Public Use
  Company Number: US-MYLANLABS-2021M1006554

PATIENT
  Age: 42 Year
  Sex: Male

DRUGS (6)
  1. FIBRINOGEN [Suspect]
     Active Substance: FIBRINOGEN HUMAN
     Indication: PROPHYLAXIS
     Dosage: 4476 MILLIGRAM, USED....
     Route: 065
  2. TRANEXAMIC ACID. [Suspect]
     Active Substance: TRANEXAMIC ACID
     Indication: PROPHYLAXIS
     Dosage: 2223 MILLIGRAM, USED....
     Route: 065
  3. FACTOR VIIA, RECOMBINANT [Suspect]
     Active Substance: COAGULATION FACTOR VIIA RECOMBINANT HUMAN
     Indication: PROPHYLAXIS
     Dosage: 1 MILLIGRAM, USED...
     Route: 065
  4. FACTOR II (PROTHROMBIN) [Suspect]
     Active Substance: PROTHROMBIN
     Indication: PROPHYLAXIS
     Dosage: 2196 UNITS; USED...
     Route: 065
  5. PROTAMINE [Suspect]
     Active Substance: PROTAMINE
     Indication: PROPHYLAXIS
     Dosage: 230 MILLIGRAM, USED...
     Route: 065
  6. THROMBIN [Suspect]
     Active Substance: THROMBIN
     Indication: PROPHYLAXIS
     Dosage: 40000 UNITS; USED ...
     Route: 061

REACTIONS (1)
  - Haemorrhage [Unknown]
